FAERS Safety Report 9247273 (Version 3)
Quarter: 2013Q2

REPORT INFORMATION
  Report Type: Spontaneous
  Country: BR (occurrence: BR)
  Receive Date: 20130423
  Receipt Date: 20130522
  Transmission Date: 20140414
  Serious: Yes (Other)
  Sender: FDA-Public Use
  Company Number: BR-AMGEN-BRASP2013027731

PATIENT
  Age: 51 Year
  Sex: Male
  Weight: 105 kg

DRUGS (4)
  1. ENBREL [Suspect]
     Indication: ANKYLOSING SPONDYLITIS
     Dosage: 50 MG, QWK
     Route: 058
     Dates: start: 201303
  2. PREDNISONE [Concomitant]
     Indication: PAIN
     Dosage: 15 MG, DAILY
  3. PREDNISONE [Concomitant]
     Indication: ANKYLOSING SPONDYLITIS
     Dosage: UNK
  4. LOSARTAN POTASSIUM [Concomitant]
     Indication: HYPERTENSION
     Dosage: 20 MG, 1X/DAY

REACTIONS (8)
  - Injection site infection [Unknown]
  - Hypersensitivity [Recovering/Resolving]
  - Pain in extremity [Unknown]
  - Skin sensitisation [Unknown]
  - Injection site hypersensitivity [Not Recovered/Not Resolved]
  - Injection site swelling [Unknown]
  - Injection site erythema [Unknown]
  - Injection site warmth [Unknown]
